FAERS Safety Report 6620938-4 (Version None)
Quarter: 2010Q1

REPORT INFORMATION
  Report Type: 
  Country: None (occurrence: None)
  Receive Date: 20100309
  Receipt Date: 20100308
  Transmission Date: 20100710
  Serious: Yes (Hospitalization)
  Sender: FDA-Public Use
  Company Number: GB-PERRIGO-10GB007632

PATIENT
  Age: 68 Year
  Sex: Female

DRUGS (5)
  1. NAPROXEN SODIUM 12063/0055 500 MG [Suspect]
     Indication: OSTEOARTHRITIS
     Dosage: 500 MG, UNK
     Route: 048
     Dates: start: 20091001, end: 20100220
  2. OMEPRAZOLE [Concomitant]
     Indication: DYSPLASIA
     Dosage: 20 MG, UNK
     Route: 048
  3. CETIRIZINE [Concomitant]
     Indication: PRURITUS
     Dosage: 10 MG, UNK
     Route: 048
  4. LISINOPRIL [Concomitant]
     Indication: HYPERTENSION
     Dosage: 10 MG, UNK
     Route: 048
  5. SIMVASTATIN [Concomitant]
     Indication: BLOOD CHOLESTEROL INCREASED
     Dosage: 40 MG, UNK
     Route: 048

REACTIONS (2)
  - GASTROINTESTINAL HAEMORRHAGE [None]
  - IRON DEFICIENCY ANAEMIA [None]
